FAERS Safety Report 4475509-5 (Version None)
Quarter: 2004Q4

REPORT INFORMATION
  Report Type: 
  Country: None (occurrence: None)
  Receive Date: 20041015
  Receipt Date: 20041007
  Transmission Date: 20050328
  Serious: Yes (Other)
  Sender: FDA-Public Use
  Company Number: CA-MERCK-0410CAN00186

PATIENT
  Sex: Male

DRUGS (3)
  1. ROFECOXIB [Suspect]
     Route: 048
     Dates: start: 20000104, end: 20000301
  2. ROFECOXIB [Suspect]
     Route: 048
     Dates: start: 20000301, end: 20031001
  3. ROFECOXIB [Suspect]
     Route: 048
     Dates: start: 20031001

REACTIONS (3)
  - BLINDNESS UNILATERAL [None]
  - BLOOD PRESSURE INCREASED [None]
  - CEREBROVASCULAR ACCIDENT [None]
